FAERS Safety Report 17466473 (Version 1)
Quarter: 2020Q1

REPORT INFORMATION
  Report Type: Spontaneous
  Country: US (occurrence: US)
  Receive Date: 20200227
  Receipt Date: 20200227
  Transmission Date: 20200409
  Serious: Yes (Other)
  Sender: FDA-Public Use
  Company Number: US-SA-2020SA047644

PATIENT
  Age: 74 Year
  Sex: Male

DRUGS (1)
  1. TOUJEO [Suspect]
     Active Substance: INSULIN GLARGINE
     Indication: TYPE 2 DIABETES MELLITUS
     Dosage: 80 IU, HS,EVERY BEDTIME
     Route: 065

REACTIONS (5)
  - Traumatic amputation [Unknown]
  - Gangrene [Unknown]
  - Retching [Unknown]
  - Limb injury [Unknown]
  - Wrong technique in device usage process [Unknown]
